FAERS Safety Report 8861742 (Version 1)
Quarter: 2012Q4

REPORT INFORMATION
  Report Type: Spontaneous
  Country: US (occurrence: None)
  Receive Date: 20121025
  Receipt Date: 20121025
  Transmission Date: 20130627
  Serious: No
  Sender: FDA-Public Use
  Company Number: None

PATIENT
  Age: 70 Year
  Sex: Male
  Weight: 93.9 kg

DRUGS (1)
  1. OXYCODONE [Suspect]
     Dosage: 5 MG PRN PO
     Route: 048
     Dates: start: 20120912, end: 20121020

REACTIONS (5)
  - Agitation [None]
  - Somnolence [None]
  - Mental status changes [None]
  - Fall [None]
  - Confusional state [None]
